FAERS Safety Report 9863986 (Version 1)
Quarter: 2014Q1

REPORT INFORMATION
  Report Type: Spontaneous
  Country: FR (occurrence: FR)
  Receive Date: 20140203
  Receipt Date: 20140203
  Transmission Date: 20141002
  Serious: Yes (Life-Threatening, Hospitalization)
  Sender: FDA-Public Use
  Company Number: FR-BAYER-2014-012806

PATIENT
  Age: 91 Year
  Sex: Male

DRUGS (2)
  1. CIFLOX [Suspect]
     Indication: PROSTATITIS
     Dosage: 500 MG, BID
     Route: 048
     Dates: start: 20131224, end: 20131231
  2. FORTUM [Concomitant]
     Dosage: UNK
     Route: 048
     Dates: start: 20131224, end: 20131230

REACTIONS (1)
  - Convulsion [Recovering/Resolving]
